FAERS Safety Report 17474559 (Version 1)
Quarter: 2020Q1

REPORT INFORMATION
  Report Type: Spontaneous
  Country: US (occurrence: US)
  Receive Date: 20200228
  Receipt Date: 20200228
  Transmission Date: 20200409
  Serious: No
  Sender: FDA-Public Use
  Company Number: None

PATIENT
  Age: 66 Year
  Sex: Female

DRUGS (1)
  1. ENOXAPARIN 120MG/0.8ML PFS INJ [Suspect]
     Active Substance: ENOXAPARIN
     Indication: PLASMA CELL MYELOMA IN REMISSION
     Route: 058
     Dates: start: 202001

REACTIONS (2)
  - Therapy cessation [None]
  - Malaise [None]

NARRATIVE: CASE EVENT DATE: 20200228
